FAERS Safety Report 8586034-4 (Version None)
Quarter: 2012Q3

REPORT INFORMATION
  Report Type: 
  Country: None (occurrence: None)
  Receive Date: 20120810
  Receipt Date: 20120801
  Transmission Date: 20120928
  Serious: Yes (Hospitalization)
  Sender: FDA-Public Use
  Company Number: JP-ASTRAZENECA-2011SE23118

PATIENT
  Age: 47 Year
  Sex: Male
  Weight: 62 kg

DRUGS (7)
  1. RABEPRAZOLE SODIUM [Concomitant]
     Indication: PROPHYLAXIS AGAINST GASTROINTESTINAL ULCER
     Route: 048
     Dates: start: 20081018
  2. LEVOFLOXACIN [Suspect]
     Indication: PNEUMONIA BACTERIAL
     Route: 048
     Dates: start: 20110412, end: 20110414
  3. X-RAY CONTRAST AGENTS [Suspect]
     Indication: INVESTIGATION
     Route: 065
     Dates: start: 20110412, end: 20110412
  4. ASPIRIN [Concomitant]
     Indication: CEREBRAL INFARCTION
     Route: 048
     Dates: start: 20081018
  5. CRESTOR [Suspect]
     Indication: DYSLIPIDAEMIA
     Route: 048
     Dates: start: 20081018, end: 20110414
  6. WARFARIN SODIUM [Concomitant]
     Indication: CARDIAC ANEURYSM
     Route: 048
     Dates: start: 20081031
  7. EPADEL S [Concomitant]
     Indication: DYSLIPIDAEMIA
     Route: 048
     Dates: start: 20110131

REACTIONS (2)
  - RHABDOMYOLYSIS [None]
  - RENAL TUBULAR DISORDER [None]
